FAERS Safety Report 8734079 (Version 2)
Quarter: 2012Q4

REPORT INFORMATION
  Report Type: Report from Study
  Country: US (occurrence: US)
  Receive Date: 20120821
  Receipt Date: 20121017
  Transmission Date: 20130627
  Serious: Yes (Hospitalization)
  Sender: FDA-Public Use
  Company Number: US-ACTELION-A-NJ2012-70171

PATIENT
  Age: 63 Year
  Sex: Male

DRUGS (2)
  1. VENTAVIS [Suspect]
     Indication: PULMONARY ARTERIAL HYPERTENSION
     Dosage: UNK
     Route: 055
     Dates: start: 20120417, end: 20120813
  2. ADCIRCA [Concomitant]

REACTIONS (2)
  - Atrial fibrillation [Recovered/Resolved]
  - Fluid retention [Recovered/Resolved]
